FAERS Safety Report 7669079-8 (Version None)
Quarter: 2011Q3

REPORT INFORMATION
  Report Type: 
  Country: None (occurrence: None)
  Receive Date: 20110808
  Receipt Date: 20110726
  Transmission Date: 20111222
  Serious: Yes (Other)
  Sender: FDA-Public Use
  Company Number: US-CELGENEUS-163-21880-11033620

PATIENT
  Sex: Male
  Weight: 55.842 kg

DRUGS (4)
  1. REVLIMID [Suspect]
     Indication: MULTIPLE MYELOMA
     Dosage: 25 MILLIGRAM
     Route: 048
     Dates: start: 20110103
  2. DEXAMETHASONE [Concomitant]
     Indication: MULTIPLE MYELOMA
     Route: 065
     Dates: start: 20110103
  3. ZOMETA [Concomitant]
     Indication: BONE LESION
     Dosage: 4 MILLIGRAM
     Route: 065
     Dates: start: 20110103
  4. VELCADE [Concomitant]
     Indication: MULTIPLE MYELOMA
     Dosage: 2.2 MILLIGRAM
     Route: 041
     Dates: start: 20110103

REACTIONS (2)
  - GINGIVITIS [None]
  - SKIN ULCER [None]
